FAERS Safety Report 15348256 (Version 1)
Quarter: 2018Q3

REPORT INFORMATION
  Report Type: Spontaneous
  Country: AU (occurrence: AU)
  Receive Date: 20180904
  Receipt Date: 20180904
  Transmission Date: 20181010
  Serious: Yes (Hospitalization, Disabling, Other)
  Sender: FDA-Public Use
  Company Number: AU-GLAXOSMITHKLINE-AU2017GSK075527

PATIENT
  Age: 30 Year
  Sex: Male
  Weight: 110 kg

DRUGS (4)
  1. MEFLOQUINE [Suspect]
     Active Substance: MEFLOQUINE
     Indication: MALARIA
     Dosage: UNK
     Dates: start: 2001
  2. TAFENOQUINE [Suspect]
     Active Substance: TAFENOQUINE
     Indication: MALARIA
     Dosage: 200 MG, WE
     Dates: start: 20000820, end: 20001020
  3. CHLOROQUINE. [Suspect]
     Active Substance: CHLOROQUINE
     Indication: PRODUCT USED FOR UNKNOWN INDICATION
     Dosage: UNK
  4. PRIMAQUINE [Suspect]
     Active Substance: PRIMAQUINE PHOSPHATE
     Indication: PRODUCT USED FOR UNKNOWN INDICATION
     Dosage: UNK

REACTIONS (23)
  - Anxiety [Not Recovered/Not Resolved]
  - Depression [Not Recovered/Not Resolved]
  - Aggression [Unknown]
  - Disturbance in attention [Unknown]
  - Anger [Unknown]
  - Stress [Unknown]
  - Performance status decreased [Unknown]
  - Speech disorder [Unknown]
  - CYP2D6 polymorphism [Unknown]
  - Paranoia [Unknown]
  - Psychiatric symptom [Unknown]
  - Coma [Unknown]
  - Condition aggravated [Unknown]
  - Poor quality sleep [Unknown]
  - Drug ineffective [Unknown]
  - Amnesia [Not Recovered/Not Resolved]
  - Post-traumatic stress disorder [Unknown]
  - Agitation [Unknown]
  - Suicide attempt [Unknown]
  - Cardiac arrest [Unknown]
  - Brain injury [Unknown]
  - Memory impairment [Unknown]
  - Mood swings [Unknown]

NARRATIVE: CASE EVENT DATE: 20060501
